FAERS Safety Report 7889387-5 (Version None)
Quarter: 2011Q4

REPORT INFORMATION
  Report Type: 
  Country: None (occurrence: None)
  Receive Date: 20111101
  Receipt Date: 20111020
  Transmission Date: 20120403
  Serious: Yes (Hospitalization)
  Sender: FDA-Public Use
  Company Number: DSA_47958_2011

PATIENT
  Age: 7 Year
  Sex: Female

DRUGS (3)
  1. TETRABENAZINE (TETRABENAZINE) [Suspect]
     Indication: CHOREA
     Dosage: (100 MG DAILY (3 DIVIDED DOSES)
  2. ENALAPRIL MALEATE [Suspect]
     Indication: RHEUMATIC HEART DISEASE
     Dosage: (0.3MG/KG/DAY)
  3. BENZATHINE PENICILLIN G [Suspect]
     Indication: RHEUMATIC HEART DISEASE
     Dosage: (DF)

REACTIONS (9)
  - BLOOD PRESSURE DECREASED [None]
  - QUADRIPARESIS [None]
  - DYSARTHRIA [None]
  - SOMNOLENCE [None]
  - AKINESIA [None]
  - APHONIA [None]
  - DYSKINESIA [None]
  - SPEECH DISORDER [None]
  - MUSCULAR WEAKNESS [None]
